FAERS Safety Report 4555499-7 (Version None)
Quarter: 2005Q1

REPORT INFORMATION
  Report Type: 
  Country: None (occurrence: None)
  Receive Date: 20050119
  Receipt Date: 20050106
  Transmission Date: 20050727
  Serious: Yes (Other)
  Sender: FDA-Public Use
  Company Number: JP-SOLVAY-00305000085

PATIENT
  Age: 67 Year
  Sex: Male

DRUGS (1)
  1. FLUVOXAMINE MALEATE [Suspect]
     Indication: ILL-DEFINED DISORDER
     Dosage: DAILY DOSE:  UNKNOWN
     Route: 048
     Dates: start: 20030501, end: 20030601

REACTIONS (1)
  - NEUROLEPTIC MALIGNANT SYNDROME [None]
